FAERS Safety Report 5514619-8 (Version None)
Quarter: 2007Q4

REPORT INFORMATION
  Report Type: 
  Country: None (occurrence: None)
  Receive Date: 20071113
  Receipt Date: 20071101
  Transmission Date: 20080405
  Serious: Yes (Hospitalization)
  Sender: FDA-Public Use
  Company Number: NO-PFIZER INC-2007091919

PATIENT
  Sex: Male

DRUGS (8)
  1. SALAZOPYRIN [Suspect]
     Indication: RHEUMATOID ARTHRITIS
     Route: 048
  2. VOLTAREN [Suspect]
     Indication: RHEUMATOID ARTHRITIS
  3. METHOTREXATE [Suspect]
     Indication: RHEUMATOID ARTHRITIS
  4. ADALAT [Concomitant]
  5. ZOCOR [Concomitant]
  6. VESICARE [Concomitant]
  7. ALBYL-E [Concomitant]
     Indication: CORONARY ARTERY DISEASE
     Route: 048
  8. FOLIC ACID [Concomitant]

REACTIONS (2)
  - ANAEMIA [None]
  - PANCYTOPENIA [None]
